FAERS Safety Report 7182113-7 (Version None)
Quarter: 2010Q4

REPORT INFORMATION
  Report Type: 
  Country: None (occurrence: None)
  Receive Date: 20101221
  Receipt Date: 20100507
  Transmission Date: 20110411
  Serious: Yes (Other)
  Sender: FDA-Public Use
  Company Number: US-AMGEN-QUU408151

PATIENT

DRUGS (2)
  1. ENBREL [Suspect]
     Indication: PSORIASIS
     Dosage: 50 MG, 2 TIMES/WK
     Route: 058
     Dates: start: 20091124, end: 20100203
  2. CLOBETASOL [Concomitant]
     Dosage: UNK UNK, UNK
     Dates: start: 20030101

REACTIONS (2)
  - CRANIAL NERVE INFECTION [None]
  - HERPES ZOSTER OPHTHALMIC [None]
